FAERS Safety Report 20930322 (Version 15)
Quarter: 2023Q2

REPORT INFORMATION
  Report Type: Report from Study
  Country: CN (occurrence: CN)
  Receive Date: 20220608
  Receipt Date: 20230620
  Transmission Date: 20230722
  Serious: Yes (Other)
  Sender: FDA-Public Use
  Company Number: CN-FOSUNKITE-FOSUNKITE-20220048

PATIENT
  Age: 54 Year
  Sex: Male

DRUGS (6)
  1. AXICABTAGENE CILOLEUCEL [Suspect]
     Active Substance: AXICABTAGENE CILOLEUCEL
     Indication: Non-Hodgkin^s lymphoma recurrent
     Dosage: 68 ML- 1.5*10^8
     Route: 042
     Dates: start: 20220223, end: 20220223
  2. FLUDARABINE PHOSPHATE [Concomitant]
     Active Substance: FLUDARABINE PHOSPHATE
     Indication: Lymphodepletion
     Dosage: 50 MG
     Route: 041
     Dates: start: 20220216
  3. CYCLOPHOSPHAMIDE [Concomitant]
     Active Substance: CYCLOPHOSPHAMIDE
     Indication: Lymphodepletion
     Dosage: 930 MG
     Route: 041
     Dates: start: 20220216, end: 20220218
  4. HUMAN IMMUNOGLOBULIN G [Concomitant]
     Active Substance: HUMAN IMMUNOGLOBULIN G
     Indication: Immune enhancement therapy
     Dosage: 5 MG, QD
     Route: 041
     Dates: start: 20220219, end: 20220304
  5. HUMAN IMMUNOGLOBULIN G [Concomitant]
     Active Substance: HUMAN IMMUNOGLOBULIN G
     Dosage: 10 G, QD
     Route: 041
     Dates: start: 20220305, end: 20220325
  6. HUMAN IMMUNOGLOBULIN G [Concomitant]
     Active Substance: HUMAN IMMUNOGLOBULIN G
     Dosage: 5 G, QD
     Route: 041
     Dates: start: 20220326, end: 20220401

REACTIONS (47)
  - Shock [Recovered/Resolved]
  - Hepatic failure [Recovered/Resolved]
  - Haematochezia [Recovered/Resolved]
  - Hypokalaemia [Recovered/Resolved]
  - Cardiac failure [Not Recovered/Not Resolved]
  - Multiple organ dysfunction syndrome [Recovered/Resolved]
  - Respiratory failure [Recovered/Resolved]
  - Cytokine release syndrome [Recovered/Resolved]
  - Alanine aminotransferase increased [Recovered/Resolved]
  - Cytokine increased [Recovered/Resolved]
  - Abdominal pain [Recovered/Resolved]
  - Hypoalbuminaemia [Recovered/Resolved]
  - C-reactive protein increased [Recovered/Resolved]
  - Gamma-glutamyltransferase increased [Recovered/Resolved]
  - N-terminal prohormone brain natriuretic peptide increased [Recovered/Resolved]
  - White blood cell count decreased [Recovered/Resolved]
  - Hypocalcaemia [Recovered/Resolved]
  - Hypophosphataemia [Recovered/Resolved]
  - Hypomagnesaemia [Recovered/Resolved]
  - Urinary tract infection [Recovered/Resolved]
  - Blood creatine phosphokinase increased [Recovered/Resolved]
  - Lymphocyte count decreased [Recovered/Resolved]
  - Aspartate aminotransferase increased [Recovered/Resolved]
  - Anaemia [Not Recovered/Not Resolved]
  - Platelet count decreased [Recovered/Resolved]
  - Neutrophil count decreased [Recovered/Resolved]
  - Blood immunoglobulin G decreased [Not Recovered/Not Resolved]
  - Myalgia [Recovered/Resolved]
  - Swelling face [Recovered/Resolved]
  - Abdominal distension [Recovered/Resolved]
  - Asthenia [Recovered/Resolved]
  - Decreased appetite [Recovered/Resolved]
  - Pleural effusion [Recovered/Resolved]
  - Intra-abdominal fluid collection [Recovered/Resolved]
  - Peripheral coldness [Recovered/Resolved]
  - Oedema peripheral [Recovered/Resolved]
  - Arthralgia [Recovered/Resolved]
  - Chest discomfort [Recovered/Resolved]
  - Chest discomfort [Recovered/Resolved]
  - Palpitations [Recovered/Resolved]
  - Haematuria [Recovered/Resolved]
  - Pyrexia [Recovered/Resolved]
  - Listless [Recovered/Resolved]
  - Pyrexia [Recovered/Resolved]
  - Pyrexia [Recovered/Resolved]
  - Headache [Recovered/Resolved]
  - Headache [Recovered/Resolved]

NARRATIVE: CASE EVENT DATE: 20220223
